FAERS Safety Report 7316014-8 (Version None)
Quarter: 2011Q1

REPORT INFORMATION
  Report Type: 
  Country: None (occurrence: None)
  Receive Date: 20110225
  Receipt Date: 20110217
  Transmission Date: 20110831
  Serious: Yes (Hospitalization)
  Sender: FDA-Public Use
  Company Number: PHHY2011IT10837

PATIENT
  Sex: Female

DRUGS (5)
  1. AMOXICILLIN AND CLAVULANATE POTASSIUM [Suspect]
     Indication: EAR PAIN
     Dosage: 2 G, DAILY
     Route: 048
     Dates: start: 20101206, end: 20101210
  2. NIMESULIDE [Concomitant]
     Dosage: 100 MG
     Route: 048
  3. VOLTADVANCE [Suspect]
     Indication: EAR PAIN
     Dosage: 75 MG, DAILY
     Route: 048
     Dates: start: 20101205, end: 20101210
  4. OMEPRAZOLE [Concomitant]
     Dosage: 20 MG,
     Route: 048
  5. SIMVASTATIN [Concomitant]
     Dosage: 20 MG
     Route: 048

REACTIONS (4)
  - EYE SWELLING [None]
  - URTICARIA [None]
  - PRURITUS [None]
  - SWELLING FACE [None]
